FAERS Safety Report 4490535-8 (Version None)
Quarter: 2004Q4

REPORT INFORMATION
  Report Type: 
  Country: None (occurrence: None)
  Receive Date: 20041028
  Receipt Date: 20041013
  Transmission Date: 20050328
  Serious: Yes (Other)
  Sender: FDA-Public Use
  Company Number: K200401584

PATIENT
  Age: 49 Year
  Sex: Female
  Weight: 81.6 kg

DRUGS (4)
  1. LEVOXYL [Suspect]
     Indication: HYPOTHYROIDISM
     Dosage: 100 MCG, QD, ORAL
     Route: 048
     Dates: start: 20020101, end: 20040901
  2. ACCUPRIL [Concomitant]
  3. IBUPROFEN [Concomitant]
  4. PREMARIN [Concomitant]

REACTIONS (6)
  - APNOEA [None]
  - CHOKING SENSATION [None]
  - NASOPHARYNGEAL DISORDER [None]
  - NODULE [None]
  - THROAT IRRITATION [None]
  - TREMOR [None]
